FAERS Safety Report 9382713 (Version 1)
Quarter: 2013Q3

REPORT INFORMATION
  Report Type: Report from Study
  Country: VE (occurrence: VE)
  Receive Date: 20130703
  Receipt Date: 20130703
  Transmission Date: 20140515
  Serious: Yes (Other)
  Sender: FDA-Public Use
  Company Number: PHHY2013VE060509

PATIENT
  Age: 63 Year
  Sex: Female

DRUGS (6)
  1. GLIVEC [Suspect]
     Indication: CHRONIC MYELOID LEUKAEMIA
     Dosage: 400 MG, DAILY
     Route: 048
     Dates: start: 20120905, end: 201303
  2. GALVUS MET [Suspect]
     Indication: TYPE 2 DIABETES MELLITUS
     Dosage: 1 DF, DAILY (50 MG OF MET/500 MG OF VILDA)
     Route: 048
  3. ACTOSMET [Concomitant]
     Indication: DIABETES MELLITUS
     Dosage: 15-850 MG DAILY
     Route: 048
     Dates: start: 201210
  4. EUTHYROX [Concomitant]
     Dosage: 100 UG, DAILY
  5. HYZAAR [Concomitant]
     Indication: HYPERTENSION
     Dosage: 50-12.5 MG DAILY
     Route: 048
     Dates: start: 2010, end: 201212
  6. ALTACE [Concomitant]
     Indication: HYPERTENSION
     Dosage: 10 MG, DAILY
     Route: 048
     Dates: start: 201212

REACTIONS (7)
  - Gastritis erosive [Recovering/Resolving]
  - Vomiting [Recovering/Resolving]
  - Nausea [Recovering/Resolving]
  - Dizziness [Recovered/Resolved]
  - Decreased appetite [Recovered/Resolved]
  - Diarrhoea [Recovered/Resolved]
  - Flatulence [Recovered/Resolved]
